FAERS Safety Report 9827206 (Version 1)
Quarter: 2013Q4

REPORT INFORMATION
  Report Type: Spontaneous
  Country: US (occurrence: None)
  Receive Date: 20131112
  Receipt Date: 20131112
  Transmission Date: 20140711
  Serious: No
  Sender: FDA-Public Use
  Company Number: US-013171

PATIENT
  Sex: Female
  Weight: 49.9 kg

DRUGS (3)
  1. PICO-SALAX (NOT SPECIFIED) [Suspect]
     Indication: BOWEL PREPARATION
     Dosage: (ONE PACKET MIXED IN 5 OZ OF COLD WATER AT 1800)
     Dates: start: 20130925
  2. TRAZODONE [Concomitant]
  3. CITALOPRAM [Concomitant]

REACTIONS (1)
  - Abdominal distension [None]
